FAERS Safety Report 15142552 (Version 9)
Quarter: 2019Q1

REPORT INFORMATION
  Report Type: Spontaneous
  Country: CA (occurrence: CA)
  Receive Date: 20180713
  Receipt Date: 20190323
  Transmission Date: 20190417
  Serious: Yes (Other)
  Sender: FDA-Public Use
  Company Number: CA-CELLTRION INC.-2018CA018862

PATIENT

DRUGS (16)
  1. INFLECTRA [Suspect]
     Active Substance: INFLIXIMAB-DYYB
     Dosage: 980 MG, EVERY 8 WEEKS
     Route: 042
     Dates: start: 20181102
  2. INFLECTRA [Suspect]
     Active Substance: INFLIXIMAB-DYYB
     Dosage: 980 MG, EVERY 8 WEEKS
     Route: 042
     Dates: start: 20180714
  3. INFLECTRA [Suspect]
     Active Substance: INFLIXIMAB-DYYB
     Dosage: 475 MG, 0, 2, 6, THEN EVERY 8 WEEKS
     Route: 042
     Dates: start: 20180309
  4. INFLECTRA [Suspect]
     Active Substance: INFLIXIMAB-DYYB
     Dosage: 980 MG, EVERY 8 WEEKS
     Route: 042
     Dates: start: 20180908
  5. INFLECTRA [Suspect]
     Active Substance: INFLIXIMAB-DYYB
     Dosage: 1000 MG, EVERY 6 WEEKS
     Dates: start: 20190125
  6. CIPRO [Concomitant]
     Active Substance: CIPROFLOXACIN HYDROCHLORIDE
     Dosage: 500 MG, BID
     Route: 048
     Dates: start: 201712
  7. INFLECTRA [Suspect]
     Active Substance: INFLIXIMAB-DYYB
     Dosage: 980 MG, EVERY 8 WEEKS
     Route: 042
     Dates: start: 20180518
  8. INFLECTRA [Suspect]
     Active Substance: INFLIXIMAB-DYYB
     Dosage: 1000 MG, EVERY 6 WEEKS
     Dates: start: 20181214
  9. FLAGYL [Concomitant]
     Active Substance: METRONIDAZOLE\METRONIDAZOLE HYDROCHLORIDE
     Dosage: 500 MG, TID
     Route: 048
     Dates: start: 201712
  10. PENTASA [Concomitant]
     Active Substance: MESALAMINE
     Dosage: UNK, BID
     Route: 048
     Dates: start: 201701
  11. INFLECTRA [Suspect]
     Active Substance: INFLIXIMAB-DYYB
     Indication: CROHN^S DISEASE
     Dosage: 475 MG, 0, 2, 6, THEN EVERY 8 WEEKS
     Route: 042
  12. INFLECTRA [Suspect]
     Active Substance: INFLIXIMAB-DYYB
     Dosage: 475 MG, 0, 2, 6, THEN EVERY 8 WEEKS
     Route: 042
     Dates: start: 20180223
  13. INFLECTRA [Suspect]
     Active Substance: INFLIXIMAB-DYYB
     Dosage: 980 MG, EVERY 6 WEEKS
     Route: 042
  14. INFLECTRA [Suspect]
     Active Substance: INFLIXIMAB-DYYB
     Dosage: 475 MG, 0, 2, 6, THEN EVERY 8 WEEKS
     Route: 042
     Dates: start: 20180407, end: 20180407
  15. INFLECTRA [Suspect]
     Active Substance: INFLIXIMAB-DYYB
     Dosage: 1000 MG, EVERY 6 WEEKS
     Dates: start: 20190308
  16. PANTOLOC [Concomitant]
     Active Substance: PANTOPRAZOLE SODIUM
     Dosage: 20 MG, DAILY
     Route: 048

REACTIONS (31)
  - Tongue coated [Unknown]
  - Haematochezia [Recovered/Resolved]
  - Uveitis [Unknown]
  - Retinal tear [Recovered/Resolved]
  - Blood pressure fluctuation [Unknown]
  - Malaise [Not Recovered/Not Resolved]
  - Anorectal discomfort [Unknown]
  - Headache [Not Recovered/Not Resolved]
  - Herpes zoster [Recovering/Resolving]
  - Vision blurred [Unknown]
  - Sleep deficit [Unknown]
  - Agitation [Unknown]
  - Fatigue [Unknown]
  - Eye allergy [Unknown]
  - Mood swings [Unknown]
  - Off label use [Unknown]
  - Dyspepsia [Not Recovered/Not Resolved]
  - Drug intolerance [Unknown]
  - Candida infection [Not Recovered/Not Resolved]
  - Ageusia [Unknown]
  - Skin sensitisation [Recovered/Resolved]
  - Neuralgia [Recovered/Resolved]
  - Arthralgia [Unknown]
  - Epistaxis [Unknown]
  - Scleritis [Recovered/Resolved]
  - Drug ineffective [Unknown]
  - Condition aggravated [Not Recovered/Not Resolved]
  - Oropharyngeal pain [Not Recovered/Not Resolved]
  - Burning sensation [Not Recovered/Not Resolved]
  - Pain [Recovered/Resolved]
  - Eye pain [Recovering/Resolving]

NARRATIVE: CASE EVENT DATE: 2018
